FAERS Safety Report 11475255 (Version 1)
Quarter: 2015Q3

REPORT INFORMATION
  Report Type: Spontaneous
  Country: US (occurrence: None)
  Receive Date: 20150902
  Receipt Date: 20150902
  Transmission Date: 20151125
  Serious: Yes (Hospitalization)
  Sender: FDA-Public Use
  Company Number: A-US2015-114214

PATIENT
  Age: 51 Year
  Sex: Female

DRUGS (2)
  1. VELETRI [Suspect]
     Active Substance: EPOPROSTENOL
     Indication: PULMONARY ARTERIAL HYPERTENSION
     Dosage: 4 NG/KG, PER MIN
     Route: 042
     Dates: start: 20150120
  2. LETAIRIS [Concomitant]
     Active Substance: AMBRISENTAN

REACTIONS (9)
  - Device leakage [None]
  - Device breakage [None]
  - Pruritus [None]
  - Dyspnoea [None]
  - Skin reaction [None]
  - Eosinophil count increased [None]
  - Malaise [None]
  - Oedema [None]
  - Cardiac failure congestive [None]

NARRATIVE: CASE EVENT DATE: 20150315
